FAERS Safety Report 18883064 (Version 2)
Quarter: 2021Q1

REPORT INFORMATION
  Report Type: Spontaneous
  Country: FR (occurrence: FR)
  Receive Date: 20210212
  Receipt Date: 20210218
  Transmission Date: 20210420
  Serious: Yes (Hospitalization)
  Sender: FDA-Public Use
  Company Number: FR-ROCHE-2768397

PATIENT
  Age: 28 Year
  Sex: Male

DRUGS (4)
  1. ACUPAN [Suspect]
     Active Substance: NEFOPAM HYDROCHLORIDE
     Indication: WRONG PATIENT
     Route: 048
     Dates: start: 20210127, end: 20210127
  2. ZONEGRAN [Suspect]
     Active Substance: ZONISAMIDE
     Indication: WRONG PATIENT
     Route: 048
     Dates: start: 20210127, end: 20210127
  3. DEPAKINE [Suspect]
     Active Substance: VALPROATE SODIUM
     Indication: WRONG PATIENT
     Route: 048
     Dates: start: 20210127, end: 20210127
  4. RIVOTRIL [Suspect]
     Active Substance: CLONAZEPAM
     Indication: WRONG PATIENT
     Route: 048
     Dates: start: 20210127, end: 20210127

REACTIONS (5)
  - Hypothermia [Recovered/Resolved]
  - Blood pressure decreased [Recovered/Resolved]
  - Somnolence [Recovered/Resolved]
  - Seizure [Recovered/Resolved]
  - Wrong patient received product [Unknown]

NARRATIVE: CASE EVENT DATE: 20210127
